FAERS Safety Report 5745108-3 (Version None)
Quarter: 2008Q2

REPORT INFORMATION
  Report Type: 
  Country: None (occurrence: None)
  Receive Date: 20080521
  Receipt Date: 20080509
  Transmission Date: 20081010
  Serious: No
  Sender: FDA-Public Use
  Company Number: PHEH2008US04014

PATIENT
  Age: 78 Year
  Sex: Female
  Weight: 88.888 kg

DRUGS (5)
  1. MECLIZINE [Concomitant]
     Dosage: 25 MG, TID
     Route: 048
     Dates: start: 20080401
  2. SPRYCEL [Concomitant]
     Dosage: 70 MG, UNK
     Dates: start: 20080218
  3. DIOVAN HCT [Concomitant]
     Dosage: 160-12.5 MG DAILY
     Dates: start: 20080120
  4. TASIGNA [Suspect]
     Indication: CHRONIC MYELOID LEUKAEMIA
     Dosage: 400 MG, BID
     Route: 048
     Dates: start: 20080425, end: 20080429
  5. TASIGNA [Suspect]
     Dosage: 2 CAPS, QAM
     Route: 048
     Dates: start: 20080509

REACTIONS (5)
  - ANOREXIA [None]
  - BURNING SENSATION [None]
  - MUSCLE SPASMS [None]
  - PAIN IN EXTREMITY [None]
  - WEIGHT INCREASED [None]
